FAERS Safety Report 21859477 (Version 3)
Quarter: 2023Q1

REPORT INFORMATION
  Report Type: Spontaneous
  Country: IL (occurrence: IL)
  Receive Date: 20230113
  Receipt Date: 20230206
  Transmission Date: 20230417
  Serious: Yes (Other)
  Sender: FDA-Public Use
  Company Number: IL-PFIZER INC-PV202300006291

PATIENT
  Age: 12 Year
  Sex: Male

DRUGS (2)
  1. SOMATROPIN [Suspect]
     Active Substance: SOMATROPIN
     Dosage: UNK, DAILY
     Route: 058
  2. SOMATROPIN [Suspect]
     Active Substance: SOMATROPIN
     Dosage: 1.35 (NO UNIT), DAILY
     Route: 058
     Dates: start: 20230112

REACTIONS (2)
  - Renal transplant [Unknown]
  - Blood glucose increased [Unknown]
